FAERS Safety Report 5471010-0 (Version None)
Quarter: 2007Q3

REPORT INFORMATION
  Report Type: 
  Country: None (occurrence: None)
  Receive Date: 20070928
  Receipt Date: 20070928
  Transmission Date: 20080115
  Serious: Yes (Hospitalization)
  Sender: FDA-Public Use
  Company Number: B0481377A

PATIENT
  Age: 7 Year
  Sex: Male
  Weight: 37 kg

DRUGS (5)
  1. AUGMENTIN '125' [Suspect]
     Route: 048
     Dates: start: 20061207, end: 20061210
  2. CELESTENE [Suspect]
     Dosage: 1TAB PER DAY
     Route: 048
     Dates: start: 20061207, end: 20061210
  3. RIFAMYCINE CHIBRET [Suspect]
     Dosage: 1DROP THREE TIMES PER DAY
     Route: 031
     Dates: start: 20061207, end: 20061210
  4. CLARITIN [Suspect]
     Route: 048
     Dates: start: 20061207, end: 20061210
  5. HEXTRIL [Suspect]
     Route: 048
     Dates: start: 20061207, end: 20061210

REACTIONS (5)
  - CONJUNCTIVITIS [None]
  - GENITAL ULCERATION [None]
  - LEUKOCYTOSIS [None]
  - NECROTISING ULCERATIVE GINGIVOSTOMATITIS [None]
  - STEVENS-JOHNSON SYNDROME [None]
